FAERS Safety Report 4523171-5 (Version None)
Quarter: 2004Q4

REPORT INFORMATION
  Report Type: 
  Country: None (occurrence: None)
  Receive Date: 20041208
  Receipt Date: 20041123
  Transmission Date: 20050328
  Serious: Yes (Death, Life-Threatening, Hospitalization, Other)
  Sender: FDA-Public Use
  Company Number: 2004BI000048

PATIENT
  Age: 64 Year
  Sex: Male

DRUGS (3)
  1. ZEVALIN [Suspect]
     Indication: NON-HODGKIN'S LYMPHOMA
     Dosage: SEE IMAGE
     Route: 042
     Dates: start: 20041028, end: 20041028
  2. ZEVALIN [Suspect]
     Indication: NON-HODGKIN'S LYMPHOMA
     Dosage: SEE IMAGE
     Route: 042
     Dates: start: 20041104, end: 20041104
  3. ANTINEOPLASTIC AGENTS [Concomitant]

REACTIONS (22)
  - ARRHYTHMIA SUPRAVENTRICULAR [None]
  - BLOOD BILIRUBIN INCREASED [None]
  - BLOOD LACTATE DEHYDROGENASE INCREASED [None]
  - BRONCHOALVEOLAR LAVAGE ABNORMAL [None]
  - COGNITIVE DISORDER [None]
  - DIALYSIS [None]
  - HYPERCAPNIA [None]
  - HYPOVOLAEMIA [None]
  - HYPOXIA [None]
  - INTERSTITIAL LUNG DISEASE [None]
  - LEGIONELLA INFECTION [None]
  - LUNG DISORDER [None]
  - MULTI-ORGAN FAILURE [None]
  - OEDEMA [None]
  - PYREXIA [None]
  - RENAL FAILURE ACUTE [None]
  - RENAL TUBULAR NECROSIS [None]
  - SHOCK [None]
  - TACHYPNOEA [None]
  - THROMBOCYTOPENIA [None]
  - TORSADE DE POINTES [None]
  - WHITE BLOOD CELL COUNT DECREASED [None]
